FAERS Safety Report 5588676-7 (Version None)
Quarter: 2008Q1

REPORT INFORMATION
  Report Type: 
  Country: None (occurrence: None)
  Receive Date: 20080111
  Receipt Date: 20080102
  Transmission Date: 20080703
  Serious: Yes (Other)
  Sender: FDA-Public Use
  Company Number: FR-SANOFI-SYNTHELABO-A01200800051

PATIENT
  Age: 72 Year
  Sex: Male

DRUGS (1)
  1. LEUPROELIN SR [Suspect]
     Indication: PROSTATE CANCER
     Route: 030

REACTIONS (1)
  - INJECTION SITE NODULE [None]
